FAERS Safety Report 6045983-1 (Version None)
Quarter: 2009Q1

REPORT INFORMATION
  Report Type: 
  Country: None (occurrence: None)
  Receive Date: 20090121
  Receipt Date: 20090108
  Transmission Date: 20090719
  Serious: Yes (Other)
  Sender: FDA-Public Use
  Company Number: DE-ELI_LILLY_AND_COMPANY-DE200901001017

PATIENT
  Age: 60 Year
  Sex: Female
  Weight: 70 kg

DRUGS (4)
  1. CYMBALTA [Suspect]
     Dosage: 4 PILLS, UNKNOWN
     Route: 048
  2. DIAZEPAM [Concomitant]
     Dosage: 80 MG/8 PILLS, UNKNOWN
     Route: 048
  3. INSULIN [Concomitant]
     Dosage: UNK, UNKNOWN
     Route: 058
  4. MELNEURIN [Concomitant]
     Dosage: 125 MG/5 PILLS, UNKNOWN
     Route: 048

REACTIONS (3)
  - HYPOGLYCAEMIA [None]
  - SOPOR [None]
  - SUICIDE ATTEMPT [None]
